FAERS Safety Report 6839529-5 (Version None)
Quarter: 2010Q3

REPORT INFORMATION
  Report Type: 
  Country: None (occurrence: None)
  Receive Date: 20100714
  Receipt Date: 20091203
  Transmission Date: 20110219
  Serious: No
  Sender: FDA-Public Use
  Company Number: A0833194A

PATIENT
  Age: 56 Year
  Sex: Female

DRUGS (7)
  1. FLOVENT [Suspect]
     Dosage: 1PUFF TWICE PER DAY
     Route: 055
     Dates: start: 20000101
  2. VENTOLIN HFA [Concomitant]
  3. SYNTHROID [Concomitant]
  4. CALCIUM MAGNESIUM ZINC [Concomitant]
  5. NIACIN [Concomitant]
  6. FISH OIL [Concomitant]
  7. VITAMIN D [Concomitant]

REACTIONS (6)
  - CANDIDIASIS [None]
  - DRY THROAT [None]
  - DYSPHONIA [None]
  - NASOPHARYNGITIS [None]
  - THROAT IRRITATION [None]
  - VOCAL CORD DISORDER [None]
